FAERS Safety Report 4684578-9 (Version None)
Quarter: 2005Q2

REPORT INFORMATION
  Report Type: 
  Country: None (occurrence: None)
  Receive Date: 20050603
  Receipt Date: 20050517
  Transmission Date: 20051028
  Serious: Yes (Death, Hospitalization)
  Sender: FDA-Public Use
  Company Number: 03-NIP00125

PATIENT
  Age: 43 Year
  Sex: Female

DRUGS (1)
  1. NIPENT [Suspect]
     Indication: GRAFT VERSUS HOST DISEASE
     Dosage: 2 MG/M2, FOR THREE DAYS, INTRAVENOUS
     Route: 042

REACTIONS (1)
  - BRONCHOPULMONARY ASPERGILLOSIS [None]
